FAERS Safety Report 11088555 (Version 2)
Quarter: 2018Q1

REPORT INFORMATION
  Report Type: Spontaneous
  Country: US (occurrence: US)
  Receive Date: 20150504
  Receipt Date: 20180312
  Transmission Date: 20180508
  Serious: Yes (Other)
  Sender: FDA-Public Use
  Company Number: US-PFIZER INC-2015144313

PATIENT
  Age: 63 Year
  Sex: Female
  Weight: 69.39 kg

DRUGS (2)
  1. NEURONTIN [Suspect]
     Active Substance: GABAPENTIN
     Indication: PAIN
     Dosage: UNK
  2. NEURONTIN [Suspect]
     Active Substance: GABAPENTIN
     Indication: NEURALGIA

REACTIONS (4)
  - Drug intolerance [Unknown]
  - Chest pain [Recovered/Resolved]
  - Drug ineffective for unapproved indication [Unknown]
  - Dysphagia [Unknown]
